FAERS Safety Report 15658397 (Version 2)
Quarter: 2018Q4

REPORT INFORMATION
  Report Type: Spontaneous
  Country: KR (occurrence: KR)
  Receive Date: 20181126
  Receipt Date: 20181130
  Transmission Date: 20190205
  Serious: Yes (Other)
  Sender: FDA-Public Use
  Company Number: KR-PFIZER INC-2018477169

PATIENT
  Age: 32 Year
  Sex: Male

DRUGS (2)
  1. OMEGA 3 [FISH OIL] [Concomitant]
     Dosage: UNK
     Dates: start: 2018, end: 2018
  2. CHAMPIX [Suspect]
     Active Substance: VARENICLINE TARTRATE
     Indication: SMOKING CESSATION THERAPY
     Dosage: 1 MG, 1X/DAY
     Route: 048
     Dates: end: 20181115

REACTIONS (8)
  - Mental disorder [Not Recovered/Not Resolved]
  - Depressed mood [Unknown]
  - Near drowning [Recovered/Resolved]
  - Abnormal behaviour [Recovered/Resolved]
  - Scar [Recovered/Resolved]
  - Skin injury [Recovered/Resolved]
  - Alcohol interaction [Recovered/Resolved]
  - Decreased appetite [Unknown]

NARRATIVE: CASE EVENT DATE: 2018
